FAERS Safety Report 6803778-2 (Version None)
Quarter: 2010Q2

REPORT INFORMATION
  Report Type: 
  Country: None (occurrence: None)
  Receive Date: 20100628
  Receipt Date: 20100628
  Transmission Date: 20101027
  Serious: Yes (Life-Threatening, Hospitalization, Other)
  Sender: FDA-Public Use
  Company Number: None

PATIENT
  Age: 61 Year
  Sex: Male
  Weight: 86.1834 kg

DRUGS (4)
  1. ZOCOR [Suspect]
     Indication: BLOOD CHOLESTEROL INCREASED
     Dates: start: 20000405, end: 20090207
  2. LOPID [Suspect]
     Indication: BLOOD TRIGLYCERIDES INCREASED
  3. IMURAN [Concomitant]
  4. ACETYLCYSTEINE [Concomitant]

REACTIONS (3)
  - IDIOPATHIC PULMONARY FIBROSIS [None]
  - LIVER DISORDER [None]
  - MUSCLE ATROPHY [None]
